FAERS Safety Report 24349683 (Version 1)
Quarter: 2024Q3

REPORT INFORMATION
  Report Type: Report from Study
  Country: CA (occurrence: CA)
  Receive Date: 20240923
  Receipt Date: 20240923
  Transmission Date: 20241016
  Serious: No
  Sender: ROCHE
  Company Number: CA-ROCHE-3496404

PATIENT
  Age: 68 Year
  Sex: Male

DRUGS (7)
  1. HERCEPTIN [Suspect]
     Active Substance: TRASTUZUMAB
     Indication: Colorectal cancer metastatic
     Route: 041
     Dates: start: 20231230, end: 20231230
  2. HERCEPTIN [Suspect]
     Active Substance: TRASTUZUMAB
     Route: 041
     Dates: start: 20240120
  3. HERCEPTIN [Suspect]
     Active Substance: TRASTUZUMAB
     Route: 042
  4. PERJETA [Suspect]
     Active Substance: PERTUZUMAB
     Indication: Colorectal cancer metastatic
     Route: 042
     Dates: start: 20231230
  5. PERJETA [Suspect]
     Active Substance: PERTUZUMAB
     Route: 042
  6. DEXAMETHASONE [Concomitant]
     Active Substance: DEXAMETHASONE
     Dosage: DRUG DOSE FIRST ADMINISTERED IS 4 MG MILLIGRAM(S)
     Route: 048
  7. VENTOLIN [Concomitant]
     Active Substance: ALBUTEROL SULFATE
     Dosage: 1-2 PUFFS Q4HOURS AS NEEDED? FREQUENCY TEXT:1-2 EVERY 4 HOURS
     Route: 050

REACTIONS (2)
  - Blood pressure diastolic increased [Unknown]
  - Blood pressure diastolic abnormal [Unknown]

NARRATIVE: CASE EVENT DATE: 20240120
